FAERS Safety Report 5263467-5 (Version None)
Quarter: 2007Q1

REPORT INFORMATION
  Report Type: 
  Country: None (occurrence: None)
  Receive Date: 20070313
  Receipt Date: 20070302
  Transmission Date: 20070707
  Serious: Yes (Other)
  Sender: FDA-Public Use
  Company Number: CH-JNJFOC-20070301436

PATIENT
  Age: 24 Year
  Sex: Male

DRUGS (7)
  1. RISPERDAL [Suspect]
     Route: 048
  2. RISPERDAL [Suspect]
     Route: 048
  3. RISPERDAL [Suspect]
     Indication: PSYCHOTIC DISORDER
     Route: 048
  4. TRILEPTAL [Concomitant]
     Route: 048
  5. TRILEPTAL [Concomitant]
     Indication: PSYCHOTIC DISORDER
     Route: 048
  6. SOLIAN [Concomitant]
     Route: 048
  7. SOLIAN [Concomitant]
     Indication: PSYCHOTIC DISORDER
     Route: 048

REACTIONS (2)
  - LEUKOPENIA [None]
  - NEUTROPENIA [None]
